FAERS Safety Report 23014201 (Version 1)
Quarter: 2023Q4

REPORT INFORMATION
  Report Type: Spontaneous
  Country: CA (occurrence: CA)
  Receive Date: 20231002
  Receipt Date: 20231002
  Transmission Date: 20240110
  Serious: Yes (Other)
  Sender: FDA-Public Use
  Company Number: CA-ROCHE-3337241

PATIENT
  Sex: Female
  Weight: 81 kg

DRUGS (9)
  1. CLONAZEPAM [Suspect]
     Active Substance: CLONAZEPAM
     Indication: Product used for unknown indication
     Dosage: AT BEDTIME ?DAILY DOSE: 0.5 MILLIGRAM
  2. OCREVUS [Suspect]
     Active Substance: OCRELIZUMAB
     Indication: Relapsing-remitting multiple sclerosis
     Dosage: 300 MG AT DAY 0 AND 14, THEN 600 MG EVERY 6 MONTH
     Route: 042
     Dates: start: 20191205
  3. TECFIDERA [Concomitant]
     Active Substance: DIMETHYL FUMARATE
  4. GABAPENTIN [Concomitant]
     Active Substance: GABAPENTIN
  5. ABILIFY [Concomitant]
     Active Substance: ARIPIPRAZOLE
     Dosage: INCREASE BY 5MG WEEKLY UNTIL 20MG DAILY
  6. ABILIFY [Concomitant]
     Active Substance: ARIPIPRAZOLE
     Dosage: INCREASE BY 5MG WEEKLY UNTIL 20MG DAILY
  7. CYMBALTA [Concomitant]
     Active Substance: DULOXETINE HYDROCHLORIDE
  8. DIAZEPAM [Concomitant]
     Active Substance: DIAZEPAM
  9. NABILONE [Concomitant]
     Active Substance: NABILONE

REACTIONS (6)
  - Bipolar disorder [Unknown]
  - Anxiety [Unknown]
  - Fatigue [Unknown]
  - Pain [Not Recovered/Not Resolved]
  - Abdominal discomfort [Unknown]
  - Hot flush [Recovered/Resolved]
